FAERS Safety Report 6240322-5 (Version None)
Quarter: 2009Q2

REPORT INFORMATION
  Report Type: 
  Country: None (occurrence: None)
  Receive Date: 20090623
  Receipt Date: 20080711
  Transmission Date: 20091009
  Serious: No
  Sender: FDA-Public Use
  Company Number: US-ASTRAZENECA-2008UW13924

PATIENT
  Age: 77 Year
  Sex: Male
  Weight: 88.5 kg

DRUGS (7)
  1. PULMICORT RESPULES [Suspect]
     Indication: CHRONIC OBSTRUCTIVE PULMONARY DISEASE
     Route: 055
  2. ALBUTEROL [Concomitant]
  3. DUONEB [Concomitant]
  4. SYMBICORT [Concomitant]
     Dosage: 160/4.5 UG TWO PUFFS TWICE A DAY
     Route: 055
  5. TEMAZEPAM [Concomitant]
  6. FLUOXETINE HCL [Concomitant]
  7. NYSTATIN [Concomitant]

REACTIONS (4)
  - CHOKING [None]
  - COUGH [None]
  - DRY MOUTH [None]
  - OROPHARYNGEAL PAIN [None]
